FAERS Safety Report 8622325-6 (Version None)
Quarter: 2012Q3

REPORT INFORMATION
  Report Type: 
  Country: None (occurrence: None)
  Receive Date: 20120827
  Receipt Date: 20120817
  Transmission Date: 20120928
  Serious: Yes (Hospitalization)
  Sender: FDA-Public Use
  Company Number: US-BIOGENIDEC-2012BI032008

PATIENT
  Sex: Male

DRUGS (3)
  1. GILENYA [Concomitant]
  2. AVONEX [Suspect]
     Indication: MULTIPLE SCLEROSIS
     Route: 030
     Dates: start: 19950719, end: 20120101
  3. AVONEX [Suspect]
     Route: 030

REACTIONS (1)
  - HEART RATE DECREASED [None]
